FAERS Safety Report 5368362-9 (Version None)
Quarter: 2007Q2

REPORT INFORMATION
  Report Type: 
  Country: None (occurrence: None)
  Receive Date: 20070625
  Receipt Date: 20070615
  Transmission Date: 20071010
  Serious: Yes (Life-Threatening, Hospitalization, Other)
  Sender: FDA-Public Use
  Company Number: GB-PURDUE-DEU_2006_0002715

PATIENT
  Age: 48 Year
  Sex: Male
  Weight: 77 kg

DRUGS (5)
  1. OXY CR TAB 10 MG [Suspect]
     Indication: PAIN
     Dosage: 20 MG, BID
     Route: 048
     Dates: start: 20061115, end: 20061122
  2. OXY CR TAB 10 MG [Suspect]
     Dosage: 50 MG, DAILY
     Route: 048
     Dates: start: 20061123, end: 20061129
  3. PREGABALINE [Concomitant]
  4. BISACODYL [Concomitant]
  5. DULOXETINE [Concomitant]

REACTIONS (2)
  - APPENDICITIS [None]
  - HAEMATURIA [None]
